FAERS Safety Report 16843632 (Version 1)
Quarter: 2019Q3

REPORT INFORMATION
  Report Type: Spontaneous
  Country: US (occurrence: US)
  Receive Date: 20190924
  Receipt Date: 20190924
  Transmission Date: 20191005
  Serious: Yes (Other)
  Sender: FDA-Public Use
  Company Number: US-ACCORD-101786

PATIENT
  Age: 68 Year
  Sex: Male

DRUGS (16)
  1. ESZOPICLONE. [Concomitant]
     Active Substance: ESZOPICLONE
  2. ATARAX [Concomitant]
     Active Substance: HYDROXYZINE HYDROCHLORIDE
  3. BIOTIN [Concomitant]
     Active Substance: BIOTIN
  4. BISACODYL. [Concomitant]
     Active Substance: BISACODYL
  5. NIVOLUMAB [Suspect]
     Active Substance: NIVOLUMAB
     Indication: TRANSITIONAL CELL CARCINOMA
     Dosage: 360 MG, Q.3WK
     Route: 042
     Dates: start: 20180910
  6. COMPAZINE [Concomitant]
     Active Substance: PROCHLORPERAZINE MALEATE
  7. TRAMADOL. [Concomitant]
     Active Substance: TRAMADOL
  8. DOCUSATE [Concomitant]
     Active Substance: DOCUSATE
  9. CIALIS [Concomitant]
     Active Substance: TADALAFIL
  10. INTERLEUKINS [Suspect]
     Active Substance: INTERLEUKIN NOS
     Indication: TRANSITIONAL CELL CARCINOMA
     Dosage: Q.3WK
     Route: 042
     Dates: start: 20180910
  11. KENALOG [Concomitant]
     Active Substance: TRIAMCINOLONE ACETONIDE
  12. ATORVASTATIN [Concomitant]
     Active Substance: ATORVASTATIN
  13. LISINOPRIL. [Suspect]
     Active Substance: LISINOPRIL
     Indication: HYPERTENSION
     Dates: start: 20181126
  14. PARACETAMOL [Concomitant]
     Active Substance: ACETAMINOPHEN
  15. AMLODIPINE [Concomitant]
     Active Substance: AMLODIPINE BESYLATE
  16. ZOFRAN [Concomitant]
     Active Substance: ONDANSETRON HYDROCHLORIDE

REACTIONS (1)
  - Hypotension [Recovering/Resolving]

NARRATIVE: CASE EVENT DATE: 20181126
